FAERS Safety Report 23562031 (Version 1)
Quarter: 2024Q1

REPORT INFORMATION
  Report Type: Spontaneous
  Country: US (occurrence: US)
  Receive Date: 20240226
  Receipt Date: 20240226
  Transmission Date: 20240409
  Serious: No
  Sender: FDA-Public Use
  Company Number: US-TAKEDA-2024TUS017274

PATIENT
  Age: 32 Year
  Sex: Male
  Weight: 82 kg

DRUGS (1)
  1. VYVANSE [Suspect]
     Active Substance: LISDEXAMFETAMINE DIMESYLATE
     Indication: Attention deficit hyperactivity disorder
     Dosage: 40 MILLIGRAM, QD
     Route: 065

REACTIONS (3)
  - Thinking abnormal [Unknown]
  - Disturbance in attention [Unknown]
  - Product availability issue [Unknown]

NARRATIVE: CASE EVENT DATE: 20231001
